FAERS Safety Report 9276106 (Version 1)
Quarter: 2013Q2

REPORT INFORMATION
  Report Type: Spontaneous
  Country: GB (occurrence: GB)
  Receive Date: 20130507
  Receipt Date: 20130507
  Transmission Date: 20140414
  Serious: Yes (Other)
  Sender: FDA-Public Use
  Company Number: GB-ALLERGAN-1306331US

PATIENT
  Age: 56 Year
  Sex: Female
  Weight: 61.5 kg

DRUGS (8)
  1. BOTOX? [Suspect]
     Indication: SKIN WRINKLING
     Dosage: 40 UNITS, SINGLE
     Route: 030
     Dates: start: 20130409, end: 20130409
  2. BOTOX? [Suspect]
     Dosage: UNK, SINGLE
     Route: 030
     Dates: start: 20130417, end: 20130417
  3. AD CAL [Concomitant]
     Dosage: UNK
     Dates: start: 20130221, end: 20130321
  4. CO-DYDRAMOL [Concomitant]
     Dosage: UNK
     Dates: start: 20130129, end: 20130204
  5. LANSOPRAZOLE [Concomitant]
     Dosage: UNK
     Dates: start: 20130221, end: 20130321
  6. LOFEPRAMINE [Concomitant]
     Dosage: UNK
     Dates: start: 20130221, end: 20130418
  7. NORMAL SALINE [Concomitant]
     Dosage: UNK
     Dates: start: 20130409
  8. RISEDRONATE SODIUM [Concomitant]
     Dosage: UNK
     Dates: start: 20130221, end: 20130321

REACTIONS (3)
  - Herpes zoster [Unknown]
  - Wrong technique in drug usage process [Unknown]
  - Rash [Unknown]
